FAERS Safety Report 4474033-3 (Version None)
Quarter: 2004Q4

REPORT INFORMATION
  Report Type: 
  Country: None (occurrence: None)
  Receive Date: 20041008
  Receipt Date: 20040916
  Transmission Date: 20050328
  Serious: Yes (Hospitalization, Other)
  Sender: FDA-Public Use
  Company Number: USA030435656

PATIENT
  Age: 80 Year
  Sex: Female
  Weight: 50 kg

DRUGS (24)
  1. FORTEO [Suspect]
     Indication: BONE DENSITY DECREASED
     Dosage: 20 UG/DAY
     Dates: start: 20030422
  2. FORTEO [Suspect]
     Indication: OSTEOPOROSIS
     Dosage: 20 UG/DAY
     Dates: start: 20030422
  3. ARICEPT [Concomitant]
  4. ASTELIN [Concomitant]
  5. BEXTRA [Concomitant]
  6. CALCITRIOL [Concomitant]
  7. FOSAMAX [Concomitant]
  8. NASOCORT(BUDESONIDE) [Concomitant]
  9. NEXIUM [Concomitant]
  10. NASAL SPRAY [Concomitant]
  11. ASPIRIN [Concomitant]
  12. ZADITOR   (KETOTIFEN) [Concomitant]
  13. MELATONIN [Concomitant]
  14. EXTRA STRENGTH TYLENOL [Concomitant]
  15. MULTIVITAMIN [Concomitant]
  16. PREVACID [Concomitant]
  17. CALCIUM [Concomitant]
  18. MAGNESIUM [Concomitant]
  19. PROVIGIL [Concomitant]
  20. PAXIL [Concomitant]
  21. CELEBREX [Concomitant]
  22. LEXAPRO [Concomitant]
  23. SEROQUEL [Concomitant]
  24. AMBIEN [Concomitant]

REACTIONS (38)
  - ABDOMINAL DISCOMFORT [None]
  - ABDOMINAL PAIN UPPER [None]
  - ARTHRALGIA [None]
  - ASTHENIA [None]
  - ASTHENOPIA [None]
  - BACK PAIN [None]
  - BUTTOCK PAIN [None]
  - CONTUSION [None]
  - COUGH [None]
  - CYSTITIS [None]
  - DIARRHOEA [None]
  - DIZZINESS [None]
  - DYSSTASIA [None]
  - EYE IRRITATION [None]
  - FAECAL INCONTINENCE [None]
  - FREQUENT BOWEL MOVEMENTS [None]
  - GAIT DISTURBANCE [None]
  - GROIN PAIN [None]
  - GUILLAIN-BARRE SYNDROME [None]
  - HYDRONEPHROSIS [None]
  - INJECTION SITE HAEMORRHAGE [None]
  - INTERVERTEBRAL DISC DISORDER [None]
  - LOOSE STOOLS [None]
  - MEMORY IMPAIRMENT [None]
  - MULTI-ORGAN DISORDER [None]
  - MUSCLE CRAMP [None]
  - MUSCULOSKELETAL STIFFNESS [None]
  - MYALGIA [None]
  - NASAL CONGESTION [None]
  - PAIN [None]
  - PAIN IN EXTREMITY [None]
  - PARAESTHESIA [None]
  - PHARMACEUTICAL PRODUCT COMPLAINT [None]
  - POOR QUALITY SLEEP [None]
  - RENAL CYST [None]
  - RHINORRHOEA [None]
  - SNEEZING [None]
  - SPINAL COLUMN STENOSIS [None]
